FAERS Safety Report 9729781 (Version 2)
Quarter: 2015Q3

REPORT INFORMATION
  Report Type: Spontaneous
  Country: US (occurrence: US)
  Receive Date: 20131204
  Receipt Date: 20150804
  Transmission Date: 20151125
  Serious: No
  Sender: FDA-Public Use
  Company Number: US-GILEAD-2009-0022473

PATIENT
  Age: 59 Year
  Sex: Male
  Weight: 104.33 kg

DRUGS (11)
  1. HCTZ [Concomitant]
     Active Substance: HYDROCHLOROTHIAZIDE
  2. OMEPRAZOLE. [Concomitant]
     Active Substance: OMEPRAZOLE
  3. IRON [Concomitant]
     Active Substance: IRON
  4. LETAIRIS [Suspect]
     Active Substance: AMBRISENTAN
     Indication: PULMONARY ARTERIAL HYPERTENSION
     Route: 048
     Dates: start: 20080730
  5. DIGOXIN. [Concomitant]
     Active Substance: DIGOXIN
  6. ATENOLOL. [Concomitant]
     Active Substance: ATENOLOL
  7. COUMADIN [Concomitant]
     Active Substance: WARFARIN SODIUM
  8. COLACE [Concomitant]
     Active Substance: DOCUSATE SODIUM
  9. BISACODYL. [Concomitant]
     Active Substance: BISACODYL
  10. METFORMIN HCL [Concomitant]
     Active Substance: METFORMIN HYDROCHLORIDE
  11. LISINOPRIL. [Concomitant]
     Active Substance: LISINOPRIL

REACTIONS (3)
  - Rash [Unknown]
  - Throat irritation [Unknown]
  - Nasal congestion [Unknown]
